FAERS Safety Report 7078970-5 (Version None)
Quarter: 2010Q4

REPORT INFORMATION
  Report Type: 
  Country: None (occurrence: None)
  Receive Date: 20101102
  Receipt Date: 20101021
  Transmission Date: 20110411
  Serious: Yes (Hospitalization, Other)
  Sender: FDA-Public Use
  Company Number: US-ELI_LILLY_AND_COMPANY-US201010006379

PATIENT
  Sex: Female

DRUGS (2)
  1. EFFIENT [Suspect]
     Indication: THROMBOSIS PROPHYLAXIS
     Dosage: 60 MG, LOADING DOSE
  2. PLAVIX [Concomitant]

REACTIONS (2)
  - HYPOAESTHESIA [None]
  - VESSEL PUNCTURE SITE HAEMORRHAGE [None]
